FAERS Safety Report 19995889 (Version 1)
Quarter: 2021Q4

REPORT INFORMATION
  Report Type: Spontaneous
  Country: RU (occurrence: RU)
  Receive Date: 20211026
  Receipt Date: 20211026
  Transmission Date: 20220303
  Serious: Yes (Other)
  Sender: FDA-Public Use
  Company Number: RU-ADIENNEP-2021AD000497

PATIENT
  Age: 9 Year
  Sex: Female

DRUGS (5)
  1. THIOTEPA [Suspect]
     Active Substance: THIOTEPA
     Indication: Allogenic stem cell transplantation
  2. CYCLOPHOSPHAMIDE [Suspect]
     Active Substance: CYCLOPHOSPHAMIDE
     Indication: Allogenic stem cell transplantation
  3. FLUDARABINE [Suspect]
     Active Substance: FLUDARABINE PHOSPHATE
     Indication: Allogenic stem cell transplantation
  4. RITUXIMAB [Suspect]
     Active Substance: RITUXIMAB
     Indication: Allogenic stem cell transplantation
  5. THYMOGLOBULIN [Suspect]
     Active Substance: LAPINE T-LYMPHOCYTE IMMUNE GLOBULIN
     Indication: Prophylaxis against transplant rejection

REACTIONS (2)
  - Cytomegalovirus viraemia [Recovered/Resolved]
  - Cytomegalovirus chorioretinitis [Recovered/Resolved]
